FAERS Safety Report 10068031 (Version 2)
Quarter: 2014Q3

REPORT INFORMATION
  Report Type: Spontaneous
  Country: RU (occurrence: RU)
  Receive Date: 20140409
  Receipt Date: 20140715
  Transmission Date: 20150326
  Serious: Yes (Death, Other)
  Sender: FDA-Public Use
  Company Number: RU-ENDO PHARMACEUTICALS INC.-AVEE20140013

PATIENT
  Age: 52 Year
  Sex: Male

DRUGS (1)
  1. AVEED [Suspect]
     Active Substance: TESTOSTERONE UNDECANOATE
     Indication: HYPOGONADISM
     Dosage: 1000MG
     Route: 030
     Dates: start: 201302, end: 201403

REACTIONS (5)
  - Gastric cancer [Unknown]
  - Metastasis [Fatal]
  - Cachexia [Unknown]
  - Metastases to liver [Fatal]
  - Hepatic mass [Unknown]

NARRATIVE: CASE EVENT DATE: 2014
